FAERS Safety Report 20232090 (Version 1)
Quarter: 2021Q4

REPORT INFORMATION
  Report Type: Spontaneous
  Country: JP (occurrence: JP)
  Receive Date: 20211227
  Receipt Date: 20211227
  Transmission Date: 20220303
  Serious: Yes (Other)
  Sender: FDA-Public Use
  Company Number: JP-LUPIN PHARMACEUTICALS INC.-2021-25601

PATIENT
  Age: 60 Year
  Sex: Male

DRUGS (7)
  1. BETAMETHASONE [Suspect]
     Active Substance: BETAMETHASONE
     Indication: Segmented hyalinising vasculitis
     Dosage: 1 MILLIGRAM
     Route: 048
  2. WARFARIN [Suspect]
     Active Substance: WARFARIN
     Indication: Segmented hyalinising vasculitis
     Dosage: UNK
     Route: 048
  3. ASPIRIN [Suspect]
     Active Substance: ASPIRIN
     Indication: Segmented hyalinising vasculitis
     Dosage: UNK
     Route: 048
  4. BERAPROST [Suspect]
     Active Substance: BERAPROST
     Indication: Segmented hyalinising vasculitis
     Dosage: UNK
     Route: 048
  5. CYCLOPHOSPHAMIDE [Suspect]
     Active Substance: CYCLOPHOSPHAMIDE
     Indication: Segmented hyalinising vasculitis
     Dosage: UNK, QD (50-100 MG)
     Route: 048
  6. CYCLOPHOSPHAMIDE [Suspect]
     Active Substance: CYCLOPHOSPHAMIDE
     Dosage: 500 MILLIGRAM
     Route: 042
  7. PREDNISOLONE [Suspect]
     Active Substance: PREDNISOLONE
     Indication: Segmented hyalinising vasculitis
     Dosage: 10 MILLIGRAM
     Route: 048

REACTIONS (2)
  - Drug ineffective for unapproved indication [Unknown]
  - Off label use [Unknown]
